FAERS Safety Report 23227400 (Version 2)
Quarter: 2023Q4

REPORT INFORMATION
  Report Type: Spontaneous
  Country: US (occurrence: US)
  Receive Date: 20231124
  Receipt Date: 20231221
  Transmission Date: 20240109
  Serious: Yes (Hospitalization)
  Sender: FDA-Public Use
  Company Number: US-PFIZER INC-PV202300189362

PATIENT
  Age: 84 Year
  Sex: Male
  Weight: 100.23 kg

DRUGS (3)
  1. PROPOFOL [Suspect]
     Active Substance: PROPOFOL
     Dosage: UNK
  2. LEVOTHYROXINE [Concomitant]
     Active Substance: LEVOTHYROXINE
     Indication: Hypothyroidism
     Dosage: 75 UG
     Dates: start: 1985
  3. TAFAMIDIS [Concomitant]
     Active Substance: TAFAMIDIS
     Dosage: UNK
     Dates: start: 202308

REACTIONS (1)
  - Cardioversion [Not Recovered/Not Resolved]
